FAERS Safety Report 15433678 (Version 1)
Quarter: 2018Q3

REPORT INFORMATION
  Report Type: Spontaneous
  Country: US (occurrence: US)
  Receive Date: 20180922
  Receipt Date: 20180922
  Transmission Date: 20181010
  Serious: Yes (Disabling)
  Sender: FDA-Public Use
  Company Number: None

PATIENT
  Age: 48 Year
  Sex: Female
  Weight: 103.95 kg

DRUGS (3)
  1. XARELTO [Suspect]
     Active Substance: RIVAROXABAN
     Indication: PULMONARY EMBOLISM
     Dosage: ?          QUANTITY:1 TABLET(S);?
     Route: 048
     Dates: start: 20180507, end: 20180912
  2. IRON [Concomitant]
     Active Substance: IRON
  3. XARELTO [Suspect]
     Active Substance: RIVAROXABAN
     Indication: DEEP VEIN THROMBOSIS
     Dosage: ?          QUANTITY:1 TABLET(S);?
     Route: 048
     Dates: start: 20180507, end: 20180912

REACTIONS (21)
  - Dysphonia [None]
  - Muscle spasms [None]
  - Chills [None]
  - Hepatomegaly [None]
  - Dizziness [None]
  - Hyperhidrosis [None]
  - Pain [None]
  - Contusion [None]
  - Abdominal distension [None]
  - Pelvic floor muscle weakness [None]
  - Decreased appetite [None]
  - Pollakiuria [None]
  - Asthenia [None]
  - Spinal pain [None]
  - Menorrhagia [None]
  - Impaired work ability [None]
  - Splenomegaly [None]
  - Dysuria [None]
  - Fatigue [None]
  - Gait disturbance [None]
  - Thrombosis [None]
